FAERS Safety Report 4945245-7 (Version None)
Quarter: 2006Q1

REPORT INFORMATION
  Report Type: 
  Country: None (occurrence: None)
  Receive Date: 20060117
  Receipt Date: 20050124
  Transmission Date: 20060701
  Serious: Yes (Other)
  Sender: FDA-Public Use
  Company Number: 393681

PATIENT
  Sex: 0

DRUGS (1)
  1. ROCEPHIN [Suspect]
     Dosage: INTRAVENOUS
     Route: 042
     Dates: start: 20030615

REACTIONS (1)
  - HAEMOLYTIC ANAEMIA [None]
